FAERS Safety Report 11082761 (Version 1)
Quarter: 2015Q2

REPORT INFORMATION
  Report Type: Report from Study
  Country: US (occurrence: US)
  Receive Date: 20150501
  Receipt Date: 20150501
  Transmission Date: 20150821
  Serious: No
  Sender: FDA-Public Use
  Company Number: US-ABBVIE-14P-163-1261349-00

PATIENT
  Age: 50 Year
  Sex: Male
  Weight: 72.64 kg

DRUGS (9)
  1. METHYLTHENID [Concomitant]
     Indication: FATIGUE
  2. ANDROGEL [Suspect]
     Active Substance: TESTOSTERONE
     Indication: BLOOD TESTOSTERONE DECREASED
     Dosage: ONE 40.5MG PACKET
     Route: 061
     Dates: start: 2012, end: 201404
  3. ANDROGEL [Suspect]
     Active Substance: TESTOSTERONE
     Dosage: 1 PUMP
     Route: 061
     Dates: start: 201404, end: 201406
  4. LEVOTHYROXINE [Concomitant]
     Active Substance: LEVOTHYROXINE
     Indication: HYPOTHYROIDISM
  5. BUPROPION [Concomitant]
     Active Substance: BUPROPION
     Indication: DEPRESSION
  6. ANDROGEL [Suspect]
     Active Substance: TESTOSTERONE
     Dosage: 2 PUMPS
     Route: 061
     Dates: start: 201406
  7. METHYLTHENID [Concomitant]
     Indication: MULTIPLE SCLEROSIS
  8. AMBIEN [Concomitant]
     Active Substance: ZOLPIDEM TARTRATE
     Indication: INSOMNIA
  9. TYSABRI [Concomitant]
     Active Substance: NATALIZUMAB
     Indication: MULTIPLE SCLEROSIS
     Dosage: INFUSION ONCE A MONTH

REACTIONS (4)
  - Libido decreased [Recovering/Resolving]
  - Asthenia [Recovering/Resolving]
  - Cognitive disorder [Recovering/Resolving]
  - Blood testosterone decreased [Not Recovered/Not Resolved]

NARRATIVE: CASE EVENT DATE: 201404
